FAERS Safety Report 6107247-7 (Version None)
Quarter: 2009Q1

REPORT INFORMATION
  Report Type: 
  Country: None (occurrence: None)
  Receive Date: 20090309
  Receipt Date: 20090224
  Transmission Date: 20090719
  Serious: Yes (Other)
  Sender: FDA-Public Use
  Company Number: US-BAYER-200828484NA

PATIENT
  Sex: Female

DRUGS (1)
  1. NEXAVAR [Suspect]
     Indication: HEPATIC NEOPLASM MALIGNANT
     Dosage: TOTAL DAILY DOSE: 800 MG  UNIT DOSE: 200 MG
     Route: 048
     Dates: start: 20080520, end: 20081203

REACTIONS (7)
  - ALOPECIA [None]
  - FATIGUE [None]
  - PAIN IN EXTREMITY [None]
  - PAIN OF SKIN [None]
  - SKIN CANCER [None]
  - SKIN LESION [None]
  - WEIGHT DECREASED [None]
